FAERS Safety Report 4534045-8 (Version None)
Quarter: 2004Q4

REPORT INFORMATION
  Report Type: 
  Country: None (occurrence: None)
  Receive Date: 20041220
  Receipt Date: 20041220
  Transmission Date: 20050328
  Serious: Yes (Hospitalization)
  Sender: FDA-Public Use
  Company Number: None

PATIENT
  Sex: Male
  Weight: 83.9154 kg

DRUGS (1)
  1. CRESTOR [Suspect]
     Indication: HYPERCHOLESTEROLAEMIA
     Dosage: 1 TABLET   EVERYDAY   ORAL
     Route: 048
     Dates: start: 20021001, end: 20041210

REACTIONS (2)
  - CHROMATURIA [None]
  - MYALGIA [None]
